FAERS Safety Report 8571855-4 (Version None)
Quarter: 2012Q3

REPORT INFORMATION
  Report Type: 
  Country: None (occurrence: None)
  Receive Date: 20120724
  Receipt Date: 20120711
  Transmission Date: 20120928
  Serious: Yes (Other)
  Sender: FDA-Public Use
  Company Number: 2012P1049708

PATIENT
  Age: 45 Year
  Sex: Male

DRUGS (4)
  1. KEPPRA [Suspect]
     Indication: CONVULSION PROPHYLAXIS
     Dosage: 3000 MG;QD;
     Dates: start: 20110501, end: 20110501
  2. DEXAMETHASONE [Concomitant]
  3. LEVETIRACETAM [Suspect]
     Indication: CONVULSION PROPHYLAXIS
     Dosage: 500 MG;BID; 3000 MG;QD;
  4. TEMOZOLOMIDE [Concomitant]

REACTIONS (5)
  - CONVULSION [None]
  - TUBULOINTERSTITIAL NEPHRITIS [None]
  - ASTROCYTOMA, LOW GRADE [None]
  - FALL [None]
  - RENAL FAILURE [None]
